FAERS Safety Report 6303054-0 (Version None)
Quarter: 2009Q3

REPORT INFORMATION
  Report Type: 
  Country: None (occurrence: None)
  Receive Date: 20090810
  Receipt Date: 20090727
  Transmission Date: 20100115
  Serious: Yes (Other)
  Sender: FDA-Public Use
  Company Number: PL-CELGENEUS-129-20785-09072080

PATIENT

DRUGS (1)
  1. THALIDOMIDE [Suspect]
     Indication: MULTIPLE MYELOMA
     Dosage: 100-200 MG
     Route: 048

REACTIONS (3)
  - COAGULATION FACTOR VII LEVEL DECREASED [None]
  - FIBRIN D DIMER INCREASED [None]
  - PLATELET FUNCTION TEST ABNORMAL [None]
